FAERS Safety Report 10160110 (Version 1)
Quarter: 2014Q2

REPORT INFORMATION
  Report Type: Spontaneous
  Country: JP (occurrence: None)
  Receive Date: 20140506
  Receipt Date: 20140506
  Transmission Date: 20141212
  Serious: Yes (Life-Threatening)
  Sender: FDA-Public Use
  Company Number: JP-ALSI-201400080

PATIENT
  Age: 77 Year
  Sex: Male
  Weight: 53 kg

DRUGS (7)
  1. CARBON DIOXIDE [Suspect]
     Indication: LAPAROSCOPIC SURGERY
     Route: 033
  2. PROPOFOL -40 MG TOTAL [Concomitant]
  3. KETAMINE -60 MG TOTAL [Concomitant]
  4. FENTANYL -100 UG TOTAL [Concomitant]
  5. PROPOFOL -5 MG/KG [Concomitant]
  6. KETAMINE -1 MG/KG [Concomitant]
  7. VECURONIUM -5 MG TOTAL [Concomitant]

REACTIONS (2)
  - Subcutaneous emphysema [None]
  - Respiratory acidosis [None]
